FAERS Safety Report 9411995 (Version 1)
Quarter: 2013Q3

REPORT INFORMATION
  Report Type: Spontaneous
  Country: US (occurrence: US)
  Receive Date: 20130722
  Receipt Date: 20130722
  Transmission Date: 20140515
  Serious: Yes (Hospitalization, Other)
  Sender: FDA-Public Use
  Company Number: US-JNJFOC-20130707595

PATIENT
  Age: 79 Year
  Sex: Female
  Weight: 79.4 kg

DRUGS (13)
  1. XARELTO [Suspect]
     Indication: CEREBROVASCULAR ACCIDENT PROPHYLAXIS
     Route: 048
     Dates: start: 20130630
  2. XARELTO [Suspect]
     Indication: ATRIAL FIBRILLATION
     Route: 048
     Dates: start: 20130630
  3. ASPIRIN [Suspect]
     Indication: PRODUCT USED FOR UNKNOWN INDICATION
     Route: 065
  4. LEVAQUIN [Concomitant]
     Dosage: FOR 3 DAYS
     Route: 065
  5. ZOCOR [Concomitant]
     Route: 065
  6. DILTIAZEM [Concomitant]
     Route: 065
  7. MELOXICAM [Concomitant]
     Indication: OSTEOARTHRITIS
     Dosage: ONCE IN A WHILE FOR ARTHRITIS
     Route: 065
  8. AMIODARONE [Concomitant]
     Route: 065
  9. GEMFIBROZIL [Concomitant]
     Route: 065
  10. PEPCID [Concomitant]
     Dosage: DAILY
     Route: 065
  11. LASIX [Concomitant]
     Dosage: DAILY AS NEEDED
     Route: 065
  12. RAMIPRIL [Concomitant]
     Dosage: DAILY
     Route: 065
  13. MEDROL [Concomitant]
     Dosage: FOR 7 DAYS
     Route: 065

REACTIONS (4)
  - Blood urine present [Not Recovered/Not Resolved]
  - Atrial fibrillation [Unknown]
  - Dyspnoea [Unknown]
  - Inappropriate schedule of drug administration [Unknown]
